FAERS Safety Report 4589192-1 (Version None)
Quarter: 2005Q1

REPORT INFORMATION
  Report Type: 
  Country: None (occurrence: None)
  Receive Date: 20050223
  Receipt Date: 20050211
  Transmission Date: 20050727
  Serious: Yes (Other)
  Sender: FDA-Public Use
  Company Number: US-JNJFOC-20050203611

PATIENT
  Sex: Female
  Weight: 63.5 kg

DRUGS (11)
  1. REMICADE [Suspect]
     Indication: RHEUMATOID ARTHRITIS
     Route: 042
  2. PREDNISONE [Concomitant]
  3. IMURAN [Concomitant]
  4. INDERAL [Concomitant]
  5. PLAQUENIL [Concomitant]
  6. PROTONIX [Concomitant]
  7. DONNATAL [Concomitant]
  8. DONNATAL [Concomitant]
  9. DONNATAL [Concomitant]
  10. DONNATAL [Concomitant]
  11. TOLMETIN SODIUM [Concomitant]

REACTIONS (2)
  - BREAST MICROCALCIFICATION [None]
  - PRECANCEROUS CELLS PRESENT [None]
